FAERS Safety Report 5671607-9 (Version None)
Quarter: 2008Q1

REPORT INFORMATION
  Report Type: 
  Country: None (occurrence: None)
  Receive Date: 20080313
  Receipt Date: 20080226
  Transmission Date: 20080703
  Serious: Yes (Hospitalization)
  Sender: FDA-Public Use
  Company Number: ENT 2008-0026

PATIENT
  Age: 64 Year
  Sex: Female

DRUGS (5)
  1. COMTAN [Suspect]
     Indication: PARKINSON'S DISEASE
     Dosage: 300 MG; 600 MG
     Route: 048
     Dates: start: 20070903, end: 20071117
  2. MADOPAR [Suspect]
     Dosage: 400 MG
     Route: 048
     Dates: start: 20070724
  3. CARBIDOPA AND LEVODOPA [Suspect]
     Dosage: 50 MG
     Route: 048
     Dates: start: 20070724
  4. RIVOTRIL [Suspect]
     Dosage: 1 MG
     Route: 048
     Dates: start: 20070724, end: 20071117
  5. LENDORMIN [Suspect]
     Dosage: 0.5 MG
     Route: 048
     Dates: start: 20070903

REACTIONS (1)
  - LOSS OF CONSCIOUSNESS [None]
